FAERS Safety Report 4319795-0 (Version None)
Quarter: 2004Q1

REPORT INFORMATION
  Report Type: 
  Country: None (occurrence: None)
  Receive Date: 20040319
  Receipt Date: 20040310
  Transmission Date: 20041129
  Serious: Yes (Life-Threatening, Hospitalization)
  Sender: FDA-Public Use
  Company Number: FR-BRISTOL-MYERS SQUIBB COMPANY-12532586

PATIENT
  Age: 54 Year
  Sex: Female

DRUGS (17)
  1. GLUCOPHAGE [Suspect]
     Indication: DIABETES MELLITUS NON-INSULIN-DEPENDENT
     Route: 048
     Dates: end: 20031211
  2. NOOTROPYL [Concomitant]
  3. MOTILIUM [Concomitant]
  4. GLIBENESE [Concomitant]
  5. LORAZEPAM [Concomitant]
  6. VIVALAN [Concomitant]
  7. AMLOR [Concomitant]
  8. EUPRESSYL [Concomitant]
  9. BISOPROLOL FUMARATE [Concomitant]
  10. LIPANTHYL [Concomitant]
  11. ASPIRIN [Concomitant]
  12. OGAST [Concomitant]
  13. DAFLON [Concomitant]
  14. IMOVANE [Concomitant]
  15. EQUANIL [Concomitant]
  16. ATARAX [Concomitant]
  17. ZESTRIL [Concomitant]

REACTIONS (3)
  - CIRCULATORY COLLAPSE [None]
  - LACTIC ACIDOSIS [None]
  - RENAL FAILURE ACUTE [None]
